FAERS Safety Report 16127015 (Version 1)
Quarter: 2019Q2

REPORT INFORMATION
  Report Type: Spontaneous
  Country: US (occurrence: US)
  Receive Date: 20190327
  Receipt Date: 20190327
  Transmission Date: 20190711
  Serious: Yes (Life-Threatening, Hospitalization)
  Sender: FDA-Public Use
  Company Number: None

PATIENT
  Age: 33 Year
  Sex: Female
  Weight: 79.8 kg

DRUGS (10)
  1. BENAZEPRIL 20MG 1 TABLET PO BID [Concomitant]
  2. BUPROPION XL 150MG 1 TABLET PO DAILY [Concomitant]
  3. DEPO-PROVERA (MEDROXYPROGESTERONE) 1 INJECTION IM EVERY 3 MONTHS [Concomitant]
  4. DAPSONE. [Suspect]
     Active Substance: DAPSONE
     Indication: DERMATITIS HERPETIFORMIS
     Route: 048
     Dates: start: 20190114, end: 20190322
  5. ALBUTEROL INHALER 90 MCG/INHALATION 1 PUFF Q4H PRN WHEEZING [Concomitant]
  6. HYDROCHLOROTHIAZIDE 25MG 1 TABLET PO DAILY [Concomitant]
  7. PANTOPRAZOLE 40MG PO BID [Concomitant]
  8. SERTRALINE 50MG 1 TABLET PO QHS [Concomitant]
  9. ALPRAZOLAM 0.25MG 1 TABLET PO DAILY [Concomitant]
  10. MELOXICAM 15MG 1 TABLET PO DAILY PRN PAIN [Concomitant]

REACTIONS (2)
  - Methaemoglobinaemia [None]
  - Dyspnoea [None]

NARRATIVE: CASE EVENT DATE: 20190322
